FAERS Safety Report 4967688-8 (Version None)
Quarter: 2006Q2

REPORT INFORMATION
  Report Type: 
  Country: None (occurrence: None)
  Receive Date: 20060410
  Receipt Date: 20050829
  Transmission Date: 20061013
  Serious: Yes (Hospitalization)
  Sender: FDA-Public Use
  Company Number: US-MERCK-0508USA04675

PATIENT
  Age: 59 Year
  Sex: Female
  Weight: 106 kg

DRUGS (6)
  1. VIOXX [Suspect]
     Indication: ARTHRITIS
     Route: 048
     Dates: start: 19991001, end: 20020801
  2. VIOXX [Suspect]
     Route: 048
     Dates: start: 19991001, end: 20020801
  3. PREMARIN [Concomitant]
     Route: 065
  4. PHENOBARBITAL [Concomitant]
     Indication: CONVULSION
     Route: 048
  5. NASONEX [Concomitant]
     Route: 065
  6. PRILOSEC [Concomitant]
     Indication: GASTROOESOPHAGEAL REFLUX DISEASE
     Route: 065

REACTIONS (21)
  - ARTERIOSCLEROSIS [None]
  - BLOOD ALKALINE PHOSPHATASE INCREASED [None]
  - BONE DISORDER [None]
  - CEREBELLAR SYNDROME [None]
  - CEREBRAL ATROPHY [None]
  - CEREBROVASCULAR ACCIDENT [None]
  - CONSTIPATION [None]
  - COUGH [None]
  - DEAFNESS BILATERAL [None]
  - FALL [None]
  - HEAD INJURY [None]
  - INTERVERTEBRAL DISC SPACE NARROWING [None]
  - NECK PAIN [None]
  - NERVOUS SYSTEM DISORDER [None]
  - OSTEOARTHRITIS [None]
  - RADICULOPATHY [None]
  - ROTATOR CUFF SYNDROME [None]
  - SPINAL OSTEOARTHRITIS [None]
  - TINNITUS [None]
  - URINARY TRACT INFECTION [None]
  - VESTIBULAR DISORDER [None]
